FAERS Safety Report 8605871-0 (Version None)
Quarter: 2012Q3

REPORT INFORMATION
  Report Type: 
  Country: None (occurrence: None)
  Receive Date: 20120820
  Receipt Date: 20120810
  Transmission Date: 20120928
  Serious: Yes (Congenital Anomaly)
  Sender: FDA-Public Use
  Company Number: US-GLAXOSMITHKLINE-A0990098A

PATIENT
  Sex: Female

DRUGS (6)
  1. HUMULIN N [Concomitant]
     Route: 064
  2. PAXIL [Suspect]
     Indication: PRODUCT USED FOR UNKNOWN INDICATION
     Dosage: 20MG PER DAY
     Route: 064
  3. MULTI-VITAMINS [Concomitant]
     Route: 064
  4. HUMALOG [Concomitant]
     Route: 064
  5. PAROXETINE [Suspect]
     Indication: PRODUCT USED FOR UNKNOWN INDICATION
     Dosage: 20MG PER DAY
     Route: 064
     Dates: start: 20040901, end: 20050101
  6. AMOXICILLIN [Concomitant]
     Route: 064

REACTIONS (4)
  - VENTRICULAR SEPTAL DEFECT [None]
  - BICUSPID AORTIC VALVE [None]
  - FOETAL EXPOSURE DURING PREGNANCY [None]
  - COARCTATION OF THE AORTA [None]
